FAERS Safety Report 8399775-9 (Version None)
Quarter: 2012Q2

REPORT INFORMATION
  Report Type: 
  Country: None (occurrence: None)
  Receive Date: 20120323
  Receipt Date: 20110719
  Transmission Date: 20120825
  Serious: Yes (Hospitalization)
  Sender: FDA-Public Use
  Company Number: 163-21880-11072521

PATIENT
  Age: 62 Year
  Sex: Male

DRUGS (10)
  1. REVLIMID [Suspect]
     Indication: MULTIPLE MYELOMA
     Dosage: 10 MG, Q DAY X 21 DAYS / 14 DAYS, PO
     Route: 048
     Dates: start: 20101001
  2. ACYCLOVIR (ACICLOVIR) (UNKNOWN) [Concomitant]
  3. DAPSONE [Concomitant]
  4. NEXIUM [Concomitant]
  5. OXYCODONE (OXYCODONE) (UNKNOWN) [Concomitant]
  6. BORTEZOMIB [Suspect]
     Indication: MULTIPLE MYELOMA
     Dosage: 1 MG, EVERY WEEK X 4 DOSES, IV
     Route: 042
  7. FLAGYL [Concomitant]
  8. DEXAMETHASONE [Suspect]
     Indication: PRODUCT USED FOR UNKNOWN INDICATION
     Dosage: UNK
  9. LISINOPRIL [Concomitant]
  10. METOPROLOL XL (METOPROLOL) (UNKNOWN) [Concomitant]

REACTIONS (2)
  - PNEUMONIA BACTERIAL [None]
  - CLOSTRIDIUM DIFFICILE COLITIS [None]
